FAERS Safety Report 15311072 (Version 3)
Quarter: 2018Q3

REPORT INFORMATION
  Report Type: Spontaneous
  Country: JP (occurrence: JP)
  Receive Date: 20180823
  Receipt Date: 20180928
  Transmission Date: 20181010
  Serious: Yes (Other)
  Sender: FDA-Public Use
  Company Number: JP-ASTRAZENECA-2018SF06029

PATIENT
  Age: 52 Year
  Sex: Female

DRUGS (1)
  1. TAGRISSO [Suspect]
     Active Substance: OSIMERTINIB
     Indication: NON-SMALL CELL LUNG CANCER
     Route: 048
     Dates: start: 20170406

REACTIONS (4)
  - Cerebral atrophy [Unknown]
  - Fine motor skill dysfunction [Not Recovered/Not Resolved]
  - Dizziness [Not Recovered/Not Resolved]
  - Dyslalia [Not Recovered/Not Resolved]

NARRATIVE: CASE EVENT DATE: 20180605
